FAERS Safety Report 11882309 (Version 1)
Quarter: 2015Q4

REPORT INFORMATION
  Report Type: Report from Study
  Country: CN (occurrence: CN)
  Receive Date: 20151231
  Receipt Date: 20151231
  Transmission Date: 20160305
  Serious: Yes (Death, Life-Threatening, Hospitalization)
  Sender: FDA-Public Use
  Company Number: CN-JNJFOC-20150922498

PATIENT
  Age: 46 Year
  Sex: Male
  Weight: 57 kg

DRUGS (1)
  1. IBRUTINIB [Suspect]
     Active Substance: IBRUTINIB
     Indication: CHRONIC LYMPHOCYTIC LEUKAEMIA
     Route: 048
     Dates: start: 20140318

REACTIONS (6)
  - Septic shock [Fatal]
  - Sepsis [Fatal]
  - Respiratory failure [Fatal]
  - Pneumonia [Fatal]
  - Diffuse large B-cell lymphoma [Fatal]
  - Chronic lymphocytic leukaemia transformation [Fatal]

NARRATIVE: CASE EVENT DATE: 201509
